FAERS Safety Report 6897368-3 (Version None)
Quarter: 2010Q3

REPORT INFORMATION
  Report Type: 
  Country: None (occurrence: None)
  Receive Date: 20100802
  Receipt Date: 20070511
  Transmission Date: 20110219
  Serious: No
  Sender: FDA-Public Use
  Company Number: US-PFIZER INC-2007039859

PATIENT
  Sex: Female
  Weight: 60.8 kg

DRUGS (6)
  1. LYRICA [Suspect]
     Indication: BACK PAIN
     Dates: start: 20070101
  2. ALL OTHER THERAPEUTIC PRODUCTS [Concomitant]
  3. OXYCODONE [Concomitant]
  4. ALL OTHER THERAPEUTIC PRODUCTS [Concomitant]
  5. ZOLOFT [Concomitant]
  6. ALL OTHER NON-THERAPEUTIC PRODUCTS [Concomitant]

REACTIONS (2)
  - MUSCLE TWITCHING [None]
  - VISION BLURRED [None]
